FAERS Safety Report 7051393-0 (Version None)
Quarter: 2010Q4

REPORT INFORMATION
  Report Type: 
  Country: None (occurrence: None)
  Receive Date: 20101018
  Receipt Date: 20101018
  Transmission Date: 20110411
  Serious: No
  Sender: FDA-Public Use
  Company Number: None

PATIENT
  Age: 38 Year
  Sex: Female
  Weight: 56.246 kg

DRUGS (2)
  1. YASMIN [Suspect]
     Indication: ACNE
     Dosage: 1 TAB DAILY AS DIRECTED PO
     Route: 048
     Dates: start: 20101010, end: 20101014
  2. YASMIN [Suspect]
     Indication: ENDOMETRIOSIS
     Dosage: 1 TAB DAILY AS DIRECTED PO
     Route: 048
     Dates: start: 20101010, end: 20101014

REACTIONS (9)
  - ABDOMINAL DISCOMFORT [None]
  - ABDOMINAL PAIN UPPER [None]
  - APHAGIA [None]
  - DIARRHOEA [None]
  - DYSPEPSIA [None]
  - FLATULENCE [None]
  - GASTROINTESTINAL PAIN [None]
  - HYPERHIDROSIS [None]
  - VOMITING [None]
